FAERS Safety Report 10202181 (Version 2)
Quarter: 2014Q2

REPORT INFORMATION
  Report Type: Report from Study
  Country: JP (occurrence: JP)
  Receive Date: 20140528
  Receipt Date: 20140602
  Transmission Date: 20141212
  Serious: Yes (Hospitalization)
  Sender: FDA-Public Use
  Company Number: JP-GLAXOSMITHKLINE-B0996539A

PATIENT
  Age: 72 Year
  Sex: Male

DRUGS (5)
  1. ROPINIROLE (GSK) [Suspect]
     Indication: PARKINSON^S DISEASE
     Dosage: 16MG PER DAY
     Route: 048
     Dates: start: 20140121, end: 20140515
  2. COMTAN [Concomitant]
     Indication: PARKINSON^S DISEASE
     Dosage: 400MG FOUR TIMES PER DAY
     Route: 048
     Dates: start: 20140521, end: 20140522
  3. DOPASTON [Concomitant]
     Indication: PARKINSON^S DISEASE
     Dates: start: 20140522
  4. BFLUID [Concomitant]
     Dates: start: 20140523
  5. VITAMEDIN [Concomitant]
     Dates: start: 20140523

REACTIONS (1)
  - Acute coronary syndrome [Not Recovered/Not Resolved]
